FAERS Safety Report 5892455-0 (Version None)
Quarter: 2008Q3

REPORT INFORMATION
  Report Type: 
  Country: None (occurrence: None)
  Receive Date: 20080923
  Receipt Date: 20080918
  Transmission Date: 20090109
  Serious: No
  Sender: FDA-Public Use
  Company Number: US-JNJFOC-20080904777

PATIENT
  Age: 49 Year
  Sex: Female
  Weight: 91.63 kg

DRUGS (7)
  1. INVEGA [Suspect]
     Indication: DEPRESSION
     Route: 048
     Dates: start: 20080605, end: 20080918
  2. PREMPHASE 14/14 [Concomitant]
     Indication: HORMONE REPLACEMENT THERAPY
     Dosage: DAILY
     Route: 048
  3. PEPSID [Concomitant]
     Route: 048
  4. LIPITOR [Concomitant]
     Indication: BLOOD CHOLESTEROL ABNORMAL
     Route: 048
  5. VENTALIN [Concomitant]
     Indication: ASTHMA
     Route: 055
  6. PROPRANOLOL [Concomitant]
     Route: 048
  7. SYMBICORT [Concomitant]
     Indication: ASTHMA
     Route: 055

REACTIONS (2)
  - BLOOD PROLACTIN INCREASED [None]
  - BREAST PAIN [None]
